FAERS Safety Report 9308232 (Version 1)
Quarter: 2013Q2

REPORT INFORMATION
  Report Type: Spontaneous
  Country: FR (occurrence: FR)
  Receive Date: 20130524
  Receipt Date: 20130524
  Transmission Date: 20140414
  Serious: Yes (Hospitalization)
  Sender: FDA-Public Use
  Company Number: FR-JNJFOC-20130510962

PATIENT
  Age: 51 Year
  Sex: Male

DRUGS (3)
  1. XARELTO [Suspect]
     Indication: PULMONARY EMBOLISM
     Route: 048
     Dates: start: 20130414
  2. ACUPAN [Suspect]
     Indication: PAIN
     Route: 065
     Dates: start: 20130421, end: 20130421
  3. DOLIPRANE [Concomitant]
     Route: 065
     Dates: start: 20130416, end: 20130417

REACTIONS (2)
  - Rash maculo-papular [Recovering/Resolving]
  - Pruritus [Recovered/Resolved]
